FAERS Safety Report 24083307 (Version 1)
Quarter: 2024Q3

REPORT INFORMATION
  Report Type: Spontaneous
  Country: GB (occurrence: GB)
  Receive Date: 20240712
  Receipt Date: 20240712
  Transmission Date: 20241016
  Serious: Yes (Other)
  Sender: AUROBINDO
  Company Number: GB-MHRA-MED-202407041350123850-LJDQC

PATIENT
  Sex: Female
  Weight: 66 kg

DRUGS (4)
  1. MONTELUKAST [Suspect]
     Active Substance: MONTELUKAST SODIUM
     Indication: Mast cell activation syndrome
     Dosage: 10 MILLIGRAM, ONCE A DAY (AT NIGHT)
     Route: 065
     Dates: start: 20231123, end: 20240627
  2. FEXOFENADINE [Concomitant]
     Active Substance: FEXOFENADINE HYDROCHLORIDE
     Indication: Mast cell activation syndrome
     Dosage: UNK
     Route: 065
     Dates: start: 20230720
  3. BISOPROLOL [Concomitant]
     Active Substance: BISOPROLOL\BISOPROLOL FUMARATE
     Indication: Postural orthostatic tachycardia syndrome
     Dosage: UNK
     Route: 065
     Dates: start: 20231123
  4. KELHALE [Concomitant]
     Indication: Asthma
     Dosage: UNK
     Route: 065
     Dates: start: 2022

REACTIONS (6)
  - Hypnagogic hallucination [Not Recovered/Not Resolved]
  - Hypnopompic hallucination [Not Recovered/Not Resolved]
  - Nightmare [Not Recovered/Not Resolved]
  - Neuropsychological symptoms [Not Recovered/Not Resolved]
  - Tinnitus [Unknown]
  - Anhidrosis [Unknown]
